FAERS Safety Report 10208880 (Version 5)
Quarter: 2014Q4

REPORT INFORMATION
  Report Type: Spontaneous
  Country: GR (occurrence: GR)
  Receive Date: 20140530
  Receipt Date: 20141013
  Transmission Date: 20150528
  Serious: Yes (Hospitalization, Disabling, Other)
  Sender: FDA-Public Use
  Company Number: GR-ALEXION PHARMACEUTICALS INC.-A201401982

PATIENT

DRUGS (2)
  1. SOLIRIS [Suspect]
     Active Substance: ECULIZUMAB
     Indication: PAROXYSMAL NOCTURNAL HAEMOGLOBINURIA
     Dosage: 600 MG, QW FOR 4 WKS
     Route: 042
     Dates: start: 20120323, end: 201204
  2. SOLIRIS [Suspect]
     Active Substance: ECULIZUMAB
     Dosage: 900 MG, Q2W
     Route: 042
     Dates: start: 201204

REACTIONS (6)
  - Blindness [Recovering/Resolving]
  - Meningococcal sepsis [Recovered/Resolved with Sequelae]
  - Paroxysmal nocturnal haemoglobinuria [Unknown]
  - Rash [Recovered/Resolved]
  - Haemolysis [Recovering/Resolving]
  - Retinal vein thrombosis [Recovered/Resolved]

NARRATIVE: CASE EVENT DATE: 20140502
